FAERS Safety Report 9114761 (Version 2)
Quarter: 2013Q1

REPORT INFORMATION
  Report Type: Spontaneous
  Country: US (occurrence: None)
  Receive Date: 20130129
  Receipt Date: 20130206
  Transmission Date: 20140127
  Serious: Yes (Disabling, Other)
  Sender: FDA-Public Use
  Company Number: AUR-APL-2013-00880

PATIENT
  Age: 80 Year
  Sex: Male

DRUGS (10)
  1. DIVALPROEX (VALPROATE SEMISODIUM) [Suspect]
     Indication: COMPLEX PARTIAL SEIZURES
  2. DIVALPROEX (VALPROATE SEMISODIUM) [Suspect]
     Indication: SCHIZOPHRENIA
  3. ISONIAZID [Suspect]
     Indication: TUBERCULOSIS
  4. PYRIDOXINE (PYRIDOXINE) [Concomitant]
  5. QUETIAPINE (QUETIAPINE) [Concomitant]
  6. OXYCODONE (OXYCODONE) [Concomitant]
  7. TAMSULOSIN (TAMSULOSIN) [Concomitant]
  8. FINASTERIDE (FINASTERIDE) [Concomitant]
  9. OMEPRAZOLE (OMEPRAZOLE) [Concomitant]
  10. CYANOCOBALAMINE (CYANOCOBALAMIN) [Concomitant]

REACTIONS (11)
  - Toxicity to various agents [None]
  - Lethargy [None]
  - Dysarthria [None]
  - Drooling [None]
  - Weight decreased [None]
  - Activities of daily living impaired [None]
  - Drug interaction [None]
  - Anticonvulsant drug level above therapeutic [None]
  - Decreased appetite [None]
  - Hyperammonaemia [None]
  - Tuberculin test positive [None]
